FAERS Safety Report 25891010 (Version 1)
Quarter: 2025Q4

REPORT INFORMATION
  Report Type: Spontaneous
  Country: US (occurrence: US)
  Receive Date: 20251007
  Receipt Date: 20251007
  Transmission Date: 20260118
  Serious: No
  Sender: RANBAXY
  Company Number: US-SUN PHARMACEUTICAL INDUSTRIES LTD-2024R1-464540

PATIENT
  Sex: Male

DRUGS (1)
  1. CEQUA [Suspect]
     Active Substance: CYCLOSPORINE
     Indication: Cataract operation
     Dosage: TWO TIMES A DAY
     Route: 047

REACTIONS (4)
  - Ocular discomfort [Unknown]
  - Therapy cessation [Unknown]
  - Drug ineffective [Unknown]
  - Eye pain [Unknown]
